FAERS Safety Report 17961489 (Version 1)
Quarter: 2020Q2

REPORT INFORMATION
  Report Type: Spontaneous
  Country: US (occurrence: US)
  Receive Date: 20200629
  Receipt Date: 20200629
  Transmission Date: 20200714
  Serious: Yes (Death, Hospitalization, Disabling)
  Sender: FDA-Public Use
  Company Number: None

PATIENT
  Age: 88 Year
  Sex: Male
  Weight: 81 kg

DRUGS (1)
  1. AMIODARONE HCL200MG [Suspect]
     Active Substance: AMIODARONE HYDROCHLORIDE
     Indication: ATRIAL FIBRILLATION
     Dosage: ?          QUANTITY:1 TABLET(S);?
     Route: 048

REACTIONS (7)
  - Renal failure [None]
  - Flank pain [None]
  - Hepatic failure [None]
  - Insomnia [None]
  - Oedema peripheral [None]
  - Abdominal distension [None]
  - Decreased appetite [None]

NARRATIVE: CASE EVENT DATE: 20190515
